FAERS Safety Report 9675449 (Version 1)
Quarter: 2013Q4

REPORT INFORMATION
  Report Type: Spontaneous
  Country: SE (occurrence: SE)
  Receive Date: 20131107
  Receipt Date: 20131107
  Transmission Date: 20140711
  Serious: Yes (Life-Threatening)
  Sender: FDA-Public Use
  Company Number: PHHY2013SE123071

PATIENT
  Age: 54 Year
  Sex: Female

DRUGS (2)
  1. SUMATRIPTAN SANDOZ [Suspect]
     Indication: MIGRAINE
     Dosage: 100 MG, QD
     Route: 048
     Dates: start: 201309
  2. LITHIONIT [Suspect]
     Dosage: 42 MG, TID
     Route: 048

REACTIONS (1)
  - Drug therapeutic incompatibility [Recovered/Resolved with Sequelae]
